FAERS Safety Report 15943998 (Version 2)
Quarter: 2019Q1

REPORT INFORMATION
  Report Type: Spontaneous
  Country: JO (occurrence: JO)
  Receive Date: 20190211
  Receipt Date: 20190212
  Transmission Date: 20190417
  Serious: Yes (Death)
  Sender: FDA-Public Use
  Company Number: JO-ROCHE-2262966

PATIENT
  Age: 33 Year
  Sex: Male
  Weight: 100 kg

DRUGS (1)
  1. TECENTRIQ [Suspect]
     Active Substance: ATEZOLIZUMAB
     Indication: NON-SMALL CELL LUNG CANCER
     Route: 042
     Dates: start: 20181130, end: 20190204

REACTIONS (1)
  - Pneumonitis [Fatal]
